FAERS Safety Report 8018455-2 (Version None)
Quarter: 2012Q1

REPORT INFORMATION
  Report Type: 
  Country: None (occurrence: None)
  Receive Date: 20120103
  Receipt Date: 20111222
  Transmission Date: 20120608
  Serious: Yes (Hospitalization)
  Sender: FDA-Public Use
  Company Number: US-BAYER-2011-036221

PATIENT
  Age: 41 Year
  Sex: Female
  Weight: 91 kg

DRUGS (6)
  1. YASMIN [Suspect]
     Indication: MENOPAUSAL SYMPTOMS
  2. YASMIN [Suspect]
     Indication: ACNE
     Dosage: UNK
     Dates: start: 20020531, end: 20030103
  3. PREDNISONE TAB [Concomitant]
     Indication: PAIN IN EXTREMITY
     Dosage: 20 MG, UNK
     Dates: start: 20021230, end: 20030103
  4. BENADRYL [Concomitant]
     Indication: INSOMNIA
  5. IMITREX [Concomitant]
     Dosage: UNK
     Dates: start: 20020904, end: 20020907
  6. NAPROXEN [Concomitant]
     Dosage: UNK
     Dates: start: 20020904, end: 20020914

REACTIONS (9)
  - PAIN [None]
  - LOWER EXTREMITY MASS [None]
  - EMOTIONAL DISTRESS [None]
  - DEEP VEIN THROMBOSIS [None]
  - THROMBOPHLEBITIS [None]
  - FEAR [None]
  - ANXIETY [None]
  - GENERAL PHYSICAL HEALTH DETERIORATION [None]
  - PHLEBITIS SUPERFICIAL [None]
